FAERS Safety Report 7557695-3 (Version None)
Quarter: 2011Q2

REPORT INFORMATION
  Report Type: 
  Country: None (occurrence: None)
  Receive Date: 20110620
  Receipt Date: 20110614
  Transmission Date: 20111010
  Serious: Yes (Hospitalization, Disabling, Other)
  Sender: FDA-Public Use
  Company Number: US-PFIZER INC-2011061689

PATIENT
  Sex: Female

DRUGS (15)
  1. CHANTIX [Suspect]
     Indication: SMOKING CESSATION THERAPY
     Dosage: STARTER PACK
     Dates: start: 20080410, end: 20080429
  2. VALIUM [Concomitant]
     Indication: ANXIETY
     Dosage: UNK
     Dates: start: 20030101, end: 20090101
  3. LEXAPRO [Concomitant]
     Indication: DEPRESSION
     Dosage: UNK
     Dates: start: 20030101
  4. TRAZODONE [Concomitant]
     Indication: INSOMNIA
     Dosage: UNK
     Dates: start: 20070101
  5. CELEXA [Concomitant]
     Indication: DEPRESSION
     Dosage: UNK
     Dates: end: 20100101
  6. NEURONTIN [Concomitant]
     Indication: PAIN
     Dosage: UNK
     Dates: start: 20030101
  7. LEXAPRO [Concomitant]
     Indication: ANXIETY
  8. BACLOFEN [Concomitant]
     Indication: MUSCLE RELAXANT THERAPY
     Dosage: UNK
     Dates: start: 20070101
  9. FENTANYL [Concomitant]
     Indication: PAIN
     Dosage: UNK
     Dates: start: 20050101
  10. LISINOPRIL [Concomitant]
     Indication: HYPERTENSION
     Dosage: UNK
     Dates: start: 20050101
  11. CYMBALTA [Concomitant]
     Indication: DEPRESSION
     Dosage: UNK
     Dates: start: 20070101
  12. FLEXERIL [Concomitant]
     Indication: MUSCLE RELAXANT THERAPY
     Dosage: UNK
     Dates: start: 20040101
  13. CYMBALTA [Concomitant]
     Indication: ANXIETY
  14. TRAZODONE [Concomitant]
     Indication: DEPRESSION
  15. ALBUTEROL SULFATE AUTOHALER [Concomitant]
     Indication: ASTHMA
     Dosage: UNK
     Dates: start: 20030101

REACTIONS (5)
  - SUICIDE ATTEMPT [None]
  - INSOMNIA [None]
  - INTENTIONAL OVERDOSE [None]
  - ANXIETY [None]
  - DEPRESSION [None]
